FAERS Safety Report 9084351 (Version 1)
Quarter: 2013Q1

REPORT INFORMATION
  Report Type: Spontaneous
  Country: US (occurrence: US)
  Receive Date: 20130131
  Receipt Date: 20130131
  Transmission Date: 20140127
  Serious: No
  Sender: FDA-Public Use
  Company Number: US-ABBOTT-12P-163-1001677-00

PATIENT
  Sex: Female
  Weight: 65.83 kg

DRUGS (3)
  1. HUMIRA [Suspect]
     Indication: CROHN^S DISEASE
     Route: 058
     Dates: start: 201110
  2. METHOTREXATE [Concomitant]
     Indication: CROHN^S DISEASE
  3. NEURONTIN [Concomitant]
     Indication: PHANTOM PAIN

REACTIONS (4)
  - Ear discomfort [Recovered/Resolved]
  - Ear infection [Recovered/Resolved]
  - Staphylococcal infection [Unknown]
  - Skin infection [Recovering/Resolving]
